FAERS Safety Report 15824588 (Version 2)
Quarter: 2019Q1

REPORT INFORMATION
  Report Type: Spontaneous
  Country: US (occurrence: US)
  Receive Date: 20190115
  Receipt Date: 20190225
  Transmission Date: 20190417
  Serious: Yes (Other)
  Sender: FDA-Public Use
  Company Number: US-ASTELLAS-2019US001208

PATIENT
  Age: 81 Year
  Sex: Female

DRUGS (1)
  1. LEXISCAN [Suspect]
     Active Substance: REGADENOSON
     Indication: CHEST PAIN
     Dosage: 0.4 MG/5ML OVER 15 SECONDS
     Route: 042
     Dates: start: 20190109, end: 20190109

REACTIONS (3)
  - Pulse absent [Recovered/Resolved]
  - Loss of consciousness [Unknown]
  - Heart rate decreased [Recovered/Resolved]

NARRATIVE: CASE EVENT DATE: 20190109
